FAERS Safety Report 21368630 (Version 5)
Quarter: 2022Q4

REPORT INFORMATION
  Report Type: Report from Study
  Country: US (occurrence: US)
  Receive Date: 20220923
  Receipt Date: 20221007
  Transmission Date: 20230112
  Serious: Yes (Death, Hospitalization)
  Sender: FDA-Public Use
  Company Number: US-ABBVIE-4129012

PATIENT
  Age: 77 Year
  Sex: Male
  Weight: 78.925 kg

DRUGS (3)
  1. HUMIRA [Suspect]
     Active Substance: ADALIMUMAB
     Indication: Psoriasis
     Dosage: CF
     Route: 058
     Dates: end: 202207
  2. Covid19 vaccine [Concomitant]
     Indication: COVID-19 immunisation
     Dosage: MODERNA 2 SHOTS + 1 BOOSTER
     Route: 030
     Dates: start: 2021, end: 2021
  3. Covid19 vaccine [Concomitant]
     Indication: COVID-19 immunisation
     Dosage: MODERNA 2ND BOOSTER
     Route: 030
     Dates: start: 202205, end: 202205

REACTIONS (2)
  - Sepsis [Fatal]
  - Wound [Fatal]

NARRATIVE: CASE EVENT DATE: 20220601
